FAERS Safety Report 6590511-5 (Version None)
Quarter: 2010Q1

REPORT INFORMATION
  Report Type: 
  Country: None (occurrence: None)
  Receive Date: 20100219
  Receipt Date: 20100210
  Transmission Date: 20100710
  Serious: Yes (Other)
  Sender: FDA-Public Use
  Company Number: JP-ROCHE-685769

PATIENT
  Sex: Male

DRUGS (3)
  1. XELODA [Suspect]
     Indication: LARGE INTESTINE CARCINOMA
     Dosage: NOTE: 3 WEEKS ADMINISTRATION FOLLOWED BY 1 WEEK REST. STOP DATE: 2009
     Route: 048
     Dates: start: 20090911
  2. XELODA [Suspect]
     Dosage: NOTE: 3 WEEKS ADMINISTRATION FOLLOWED BY 1 WEEK REST
     Route: 048
     Dates: start: 20091009
  3. XELODA [Suspect]
     Route: 048
     Dates: start: 20100201, end: 20100206

REACTIONS (1)
  - HAEMOLYTIC ANAEMIA [None]
